FAERS Safety Report 4298937-X (Version None)
Quarter: 2004Q1

REPORT INFORMATION
  Report Type: 
  Country: None (occurrence: None)
  Receive Date: 20040217
  Receipt Date: 20040202
  Transmission Date: 20041129
  Serious: Yes (Other)
  Sender: FDA-Public Use
  Company Number: 6007291

PATIENT
  Age: 65 Year
  Sex: Female

DRUGS (3)
  1. METFORMIN HCL [Suspect]
     Indication: DIABETES MELLITUS
     Dosage: 2550 MG (3 IN 1 D) ORAL
     Route: 048
     Dates: start: 20030901
  2. BETA-BLOCKING DRUG [Suspect]
     Dosage: UNKNOWN
     Route: 065
  3. PHLEBOTONIC DRUG [Suspect]
     Dosage: UNKNOWN
     Route: 065

REACTIONS (1)
  - PANCREATITIS [None]
